FAERS Safety Report 8277678 (Version 9)
Quarter: 2013Q4

REPORT INFORMATION
  Report Type: Report from Study
  Country: HU (occurrence: HU)
  Receive Date: 20111207
  Receipt Date: 20131024
  Transmission Date: 20140711
  Serious: Yes (Hospitalization, Disabling, Other)
  Sender: FDA-Public Use
  Company Number: HU-CELGENEUS-076-21880-11113236

PATIENT
  Age: 71 Year
  Sex: Female
  Weight: 60 kg

DRUGS (26)
  1. REVLIMID [Suspect]
     Indication: PLASMA CELL MYELOMA
     Dosage: 25 MILLIGRAM
     Route: 048
     Dates: start: 20110720, end: 20110804
  2. REVLIMID [Suspect]
     Dosage: 15 MILLIGRAM
     Route: 048
     Dates: start: 20110818, end: 20110907
  3. REVLIMID [Suspect]
     Dosage: 15 MILLIGRAM
     Route: 048
     Dates: start: 20110915, end: 20111005
  4. CARFILZOMIB [Suspect]
     Indication: PLASMA CELL MYELOMA
     Dosage: 30 MILLIGRAM
     Route: 065
     Dates: start: 20110720, end: 20110728
  5. CARFILZOMIB [Suspect]
     Dosage: 40.5 MILLIGRAM
     Route: 065
     Dates: start: 20110728, end: 20110729
  6. CARFILZOMIB [Suspect]
     Dosage: 40 MILLIGRAM
     Route: 065
     Dates: start: 20110806, end: 20110806
  7. CARFILZOMIB [Suspect]
     Dosage: 40.5 MILLIGRAM
     Route: 065
     Dates: start: 20110807, end: 20110807
  8. CARFILZOMIB [Suspect]
     Dosage: 40 MILLIGRAM
     Route: 065
     Dates: start: 20110915, end: 20110923
  9. CARFILZOMIB [Suspect]
     Dosage: 40.5 MILLIGRAM
     Route: 065
     Dates: start: 20110929, end: 20110930
  10. DEXAMETHASONE [Suspect]
     Indication: PLASMA CELL MYELOMA
     Route: 065
     Dates: start: 20110720, end: 20110728
  11. DEXAMETHASONE [Suspect]
     Indication: RASH
     Route: 065
     Dates: start: 20110805, end: 20110812
  12. DEXAMETHASONE [Suspect]
     Dosage: 2.8571 MILLIGRAM
     Route: 065
     Dates: start: 20110915, end: 20111006
  13. DEXAMETHASONE [Suspect]
     Route: 041
     Dates: start: 20110804, end: 20110809
  14. ARANESP [Concomitant]
     Indication: ANAEMIA
     Route: 058
     Dates: start: 20110929, end: 20111111
  15. BETALOC ZOK [Concomitant]
     Indication: HYPERTENSION
     Dosage: 50 MILLIGRAM
     Route: 048
     Dates: start: 20020101, end: 20120618
  16. CLEXANE [Concomitant]
     Indication: THROMBOSIS PROPHYLAXIS
     Dosage: .4 MILLILITER
     Route: 058
     Dates: start: 20110719, end: 20111111
  17. COVEREX [Concomitant]
     Indication: HYPERTENSION
     Dosage: 5 MILLIGRAM
     Route: 048
     Dates: start: 20020101, end: 20120618
  18. FRONTIN [Concomitant]
     Indication: ANXIETY
     Dosage: .25 MILLIGRAM
     Route: 048
     Dates: start: 20050101, end: 20120618
  19. LANSOPRAZOLE [Concomitant]
     Indication: PROPHYLAXIS
     Route: 048
     Dates: start: 20110719, end: 20111014
  20. MONO MACK DEPO [Concomitant]
     Indication: HYPERTENSION
     Dosage: 50 MILLIGRAM
     Route: 048
     Dates: start: 20020101, end: 20120618
  21. NITROGLYCERINE [Concomitant]
     Indication: HYPERTENSION
     Dosage: 5 MILLIGRAM
     Route: 062
     Dates: start: 20020101, end: 20120618
  22. NORVASC [Concomitant]
     Indication: HYPERTENSION
     Dosage: 5 MILLIGRAM
     Route: 048
     Dates: start: 20020101, end: 20120618
  23. TELVIRAN [Concomitant]
     Indication: ANTIVIRAL PROPHYLAXIS
     Dosage: 400 MILLIGRAM
     Route: 048
     Dates: start: 20110719, end: 20111014
  24. VENTER [Concomitant]
     Indication: DYSPEPSIA
     Dosage: 3000 MILLIGRAM
     Route: 048
     Dates: start: 20110804, end: 20111029
  25. ZOMETA [Concomitant]
     Indication: PROPHYLAXIS
     Route: 041
     Dates: start: 20110720, end: 20111014
  26. CONTROLOC [Concomitant]
     Indication: GASTRIC PH DECREASED
     Dosage: 80 MILLIGRAM
     Route: 048
     Dates: start: 20110804, end: 20110807

REACTIONS (2)
  - Colorectal cancer metastatic [Not Recovered/Not Resolved]
  - Ischaemic stroke [Recovered/Resolved with Sequelae]
